FAERS Safety Report 8607458-2 (Version None)
Quarter: 2012Q3

REPORT INFORMATION
  Report Type: 
  Country: None (occurrence: None)
  Receive Date: 20120821
  Receipt Date: 20120813
  Transmission Date: 20120928
  Serious: Yes (Death)
  Sender: FDA-Public Use
  Company Number: US-SANOFI-AVENTIS-2012SA058433

PATIENT
  Age: 65 Year
  Sex: Female

DRUGS (2)
  1. APIDRA [Suspect]
     Dosage: DOSE:42 UNIT(S)
     Route: 058
     Dates: start: 20110401
  2. LANTUS [Suspect]
     Dosage: DOSE:80 UNIT(S)
     Route: 058
     Dates: start: 20110401

REACTIONS (1)
  - DEATH [None]
